FAERS Safety Report 13968219 (Version 8)
Quarter: 2017Q4

REPORT INFORMATION
  Report Type: Spontaneous
  Country: US (occurrence: US)
  Receive Date: 20170914
  Receipt Date: 20171208
  Transmission Date: 20180320
  Serious: Yes (Hospitalization)
  Sender: FDA-Public Use
  Company Number: US-UNITED THERAPEUTICS-UNT-2017-013170

PATIENT
  Age: 65 Year
  Sex: Female
  Weight: 94.97 kg

DRUGS (5)
  1. REMODULIN [Suspect]
     Active Substance: TREPROSTINIL
     Indication: PULMONARY ARTERIAL HYPERTENSION
     Dosage: 0.02925 ?G/KG, CONTINUING
     Route: 041
     Dates: start: 20170510
  2. XARELTO [Concomitant]
     Active Substance: RIVAROXABAN
     Indication: PRODUCT USED FOR UNKNOWN INDICATION
     Route: 065
  3. REMODULIN [Suspect]
     Active Substance: TREPROSTINIL
     Dosage: 0.03075 ?G/KG, CONTINUING
     Route: 041
  4. SILDENAFIL CITRATE. [Concomitant]
     Active Substance: SILDENAFIL CITRATE
     Indication: PRODUCT USED FOR UNKNOWN INDICATION
     Route: 065
  5. LETAIRIS [Concomitant]
     Active Substance: AMBRISENTAN
     Indication: PRODUCT USED FOR UNKNOWN INDICATION
     Route: 065

REACTIONS (5)
  - Oedema peripheral [Unknown]
  - Fluid overload [Unknown]
  - Dyspnoea [Unknown]
  - Hypoxia [Unknown]
  - Pain in jaw [Unknown]

NARRATIVE: CASE EVENT DATE: 20170906
